FAERS Safety Report 10067548 (Version 2)
Quarter: 2014Q3

REPORT INFORMATION
  Report Type: Spontaneous
  Country: FR (occurrence: FR)
  Receive Date: 20140409
  Receipt Date: 20140923
  Transmission Date: 20150326
  Serious: Yes (Death, Life-Threatening, Hospitalization)
  Sender: FDA-Public Use
  Company Number: FR-JNJFOC-20140404810

PATIENT
  Age: 69 Year
  Sex: Male
  Weight: 72.97 kg

DRUGS (7)
  1. VOLTARENE [Suspect]
     Active Substance: DICLOFENAC SODIUM
     Indication: PRODUCT USED FOR UNKNOWN INDICATION
     Route: 048
     Dates: start: 20140205, end: 20140215
  2. GLUCOPHAGE [Concomitant]
     Active Substance: METFORMIN HYDROCHLORIDE
     Route: 048
  3. BISOPROLOL HEMIFUMARATE [Concomitant]
     Active Substance: BISOPROLOL
     Route: 048
  4. XARELTO [Suspect]
     Active Substance: RIVAROXABAN
     Indication: PRODUCT USED FOR UNKNOWN INDICATION
     Route: 048
  5. DIAMICRON [Concomitant]
     Active Substance: GLICLAZIDE
     Route: 048
  6. TRIATEC [Concomitant]
     Active Substance: RAMIPRIL
     Route: 048
  7. GALVUS [Concomitant]
     Active Substance: VILDAGLIPTIN
     Route: 048

REACTIONS (4)
  - Melaena [Fatal]
  - Anaemia [Fatal]
  - Shock haemorrhagic [Fatal]
  - Duodenal ulcer [Fatal]

NARRATIVE: CASE EVENT DATE: 20140222
